FAERS Safety Report 23913266 (Version 1)
Quarter: 2024Q2

REPORT INFORMATION
  Report Type: Spontaneous
  Country: US (occurrence: US)
  Receive Date: 20240529
  Receipt Date: 20240529
  Transmission Date: 20240715
  Serious: No
  Sender: FDA-Public Use
  Company Number: US-INGENUS PHARMACEUTICALS, LLC-2024INF000014

PATIENT

DRUGS (2)
  1. DORZOLAMIDE HYDROCHLORIDE AND TIMOLOL MALEATE [Suspect]
     Active Substance: DORZOLAMIDE HYDROCHLORIDE\TIMOLOL MALEATE
     Indication: Exudative retinopathy
     Dosage: UNK, BID
     Route: 047
  2. DORZOLAMIDE HYDROCHLORIDE AND TIMOLOL MALEATE [Suspect]
     Active Substance: DORZOLAMIDE HYDROCHLORIDE\TIMOLOL MALEATE
     Indication: Intraocular pressure increased

REACTIONS (8)
  - Eyelid infection [Unknown]
  - Eyelid irritation [Unknown]
  - Eye infection [Unknown]
  - Eyelid oedema [Unknown]
  - Eye pain [Recovering/Resolving]
  - Eyelid pain [Unknown]
  - Swelling of eyelid [Unknown]
  - Product use in unapproved indication [Unknown]
